FAERS Safety Report 8589417-1 (Version None)
Quarter: 2012Q3

REPORT INFORMATION
  Report Type: 
  Country: None (occurrence: None)
  Receive Date: 20120813
  Receipt Date: 20120806
  Transmission Date: 20120928
  Serious: Yes (Disabling)
  Sender: FDA-Public Use
  Company Number: BR-SANOFI-AVENTIS-2012SA056414

PATIENT
  Age: 65 Year
  Sex: Male
  Weight: 82 kg

DRUGS (10)
  1. HYZAAR [Concomitant]
     Indication: BLOOD PRESSURE
     Dosage: STRENGTH: 100/25 MG/TABLET, LOSARTAN/HYDROCHLOROTHIAZIDE
     Route: 048
  2. XENICAL [Concomitant]
     Indication: BODY FAT DISORDER
     Route: 048
  3. ROSUVASTATIN [Concomitant]
     Dosage: STRENGTH: 100 MG/ TABLET
     Route: 048
  4. LANTUS [Suspect]
     Indication: TYPE 2 DIABETES MELLITUS
     Dosage: CARTRIDGE 3 ML
     Route: 058
     Dates: start: 20030101
  5. AUTOPEN 24 [Suspect]
     Indication: DEVICE THERAPY
     Dates: start: 20030101
  6. SYNTHROID [Concomitant]
     Indication: THYROID DISORDER
     Dosage: STRENGTH: 125 MCG/TABLET
     Route: 048
  7. ORAL ANTIDIABETICS [Concomitant]
     Indication: TYPE 2 DIABETES MELLITUS
     Route: 048
  8. ASPIRIN [Concomitant]
     Dosage: STRENGTH: 10 MG/TABLET
     Route: 048
     Dates: start: 20040101
  9. HUMALOG [Concomitant]
     Indication: TYPE 2 DIABETES MELLITUS
     Dosage: DOSE: ACCORDING TO GLYCEMIA
     Route: 058
  10. VICTOZA [Concomitant]
     Indication: TYPE 2 DIABETES MELLITUS
     Dosage: DOSE: 1.2 IU DAILY
     Route: 058

REACTIONS (4)
  - HYPERGLYCAEMIA [None]
  - HEMIPLEGIA [None]
  - CEREBROVASCULAR ACCIDENT [None]
  - HYPOGLYCAEMIA [None]
